FAERS Safety Report 16997039 (Version 1)
Quarter: 2019Q4

REPORT INFORMATION
  Report Type: Spontaneous
  Country: IT (occurrence: IT)
  Receive Date: 20191106
  Receipt Date: 20191106
  Transmission Date: 20200122
  Serious: Yes (Other)
  Sender: FDA-Public Use
  Company Number: IT-TEVA-2019-IT-1131287

PATIENT
  Age: 53 Year
  Sex: Female

DRUGS (7)
  1. DIBASE 10.000 U.I./ML GOCCE ORALI, SOLUZIONE [Concomitant]
     Active Substance: CHOLECALCIFEROL
  2. BROMAZEPAM [Concomitant]
     Active Substance: BROMAZEPAM
  3. EUTIROX [Concomitant]
     Active Substance: LEVOTHYROXINE SODIUM
  4. LIVIAL [Concomitant]
     Active Substance: TIBOLONE
  5. OMEPRAZEN [Concomitant]
     Active Substance: OMEPRAZOLE
  6. DOMPERIDONE [Concomitant]
     Active Substance: DOMPERIDONE
  7. METHOTREXATE. [Suspect]
     Active Substance: METHOTREXATE
     Route: 065

REACTIONS (4)
  - Alopecia [Unknown]
  - Dysentery [Unknown]
  - Irritable bowel syndrome [Unknown]
  - Abdominal distension [Unknown]
